FAERS Safety Report 5363825-4 (Version None)
Quarter: 2007Q2

REPORT INFORMATION
  Report Type: 
  Country: None (occurrence: None)
  Receive Date: 20070620
  Receipt Date: 20070608
  Transmission Date: 20071010
  Serious: Yes (Other)
  Sender: FDA-Public Use
  Company Number: US-SANOFI-SYNTHELABO-A03200703716

PATIENT
  Age: 40 Year
  Sex: Male

DRUGS (3)
  1. COUMADIN [Concomitant]
     Dosage: UNK
     Route: 065
     Dates: start: 20020101
  2. PLAVIX [Suspect]
     Indication: VASCULAR BYPASS GRAFT
     Route: 048
  3. PLAVIX [Suspect]
     Indication: MULTIPLE CONGENITAL ABNORMALITIES
     Route: 048

REACTIONS (1)
  - ARTERIAL OCCLUSIVE DISEASE [None]
